FAERS Safety Report 10597059 (Version 1)
Quarter: 2014Q4

REPORT INFORMATION
  Report Type: Spontaneous
  Country: US (occurrence: US)
  Receive Date: 20141121
  Receipt Date: 20141121
  Transmission Date: 20150529
  Serious: No
  Sender: FDA-Public Use
  Company Number: US-009507513-1410USA014821

PATIENT
  Age: 23 Year
  Sex: Female
  Weight: 61.22 kg

DRUGS (1)
  1. IMPLANON [Suspect]
     Active Substance: ETONOGESTREL
     Indication: CONTRACEPTION
     Dosage: 1 ROD FOR 3 YEARS
     Route: 059
     Dates: start: 20141025

REACTIONS (3)
  - Implant site discolouration [Unknown]
  - Implant site pain [Unknown]
  - Implant site bruising [Unknown]

NARRATIVE: CASE EVENT DATE: 20141026
